FAERS Safety Report 25886835 (Version 1)
Quarter: 2025Q4

REPORT INFORMATION
  Report Type: Spontaneous
  Country: US (occurrence: None)
  Receive Date: 20251006
  Receipt Date: 20251006
  Transmission Date: 20260117
  Serious: Yes (Hospitalization)
  Sender: FDA-CTU
  Company Number: None

PATIENT
  Age: 79 Year
  Sex: Female
  Weight: 94.8 kg

DRUGS (12)
  1. HYDROCHLOROTHIAZIDE [Suspect]
     Active Substance: HYDROCHLOROTHIAZIDE
     Indication: Blood pressure measurement
     Dosage: 1 PILL ONCE A DAY BY MOUTH
     Route: 048
     Dates: start: 20230911, end: 20250902
  2. Niredipine ER 90 MG TABLET (ONCE A DAY) B/P [Concomitant]
  3. LOSARTAN POTASSIUM [Concomitant]
     Active Substance: LOSARTAN POTASSIUM
  4. Simvastatin 10mg (Once a day (cholesterol) [Concomitant]
  5. Omeprazole 40mg (twice a day (stomach acid) [Concomitant]
  6. Fish Oil Omega 3 (2,000 units) [Concomitant]
  7. One a day vitamins women [Concomitant]
  8. Calcium (600 mg plus D 2,000.00 mg [Concomitant]
  9. Fish Oil Omega (2,000 units) [Concomitant]
  10. One a day vitamins women [Concomitant]
  11. Calcium (600 mg plus D 2,000 mg [Concomitant]
  12. Vitamin D3 (one every other day) [Concomitant]

REACTIONS (12)
  - Hyponatraemia [None]
  - Therapy cessation [None]
  - Blood potassium decreased [None]
  - Blood magnesium decreased [None]
  - Nausea [None]
  - Vomiting [None]
  - Headache [None]
  - Asthenia [None]
  - Fatigue [None]
  - Restlessness [None]
  - Muscular weakness [None]
  - Confusional state [None]

NARRATIVE: CASE EVENT DATE: 20230201
